FAERS Safety Report 8242297 (Version 2)
Quarter: 2013Q1

REPORT INFORMATION
  Report Type: Spontaneous
  Country: US (occurrence: US)
  Receive Date: 20111114
  Receipt Date: 20130204
  Transmission Date: 20140127
  Serious: No
  Sender: FDA-Public Use
  Company Number: US-BIOGENIDEC-2011BI042654

PATIENT
  Age: 51 Year
  Sex: Male

DRUGS (3)
  1. AVONEX [Suspect]
     Indication: MULTIPLE SCLEROSIS
     Route: 030
     Dates: start: 20111015
  2. ULTRAM [Concomitant]
     Indication: PAIN
     Route: 048
     Dates: start: 201109
  3. HYDROCODONE [Concomitant]
     Indication: PAIN
     Route: 048
     Dates: start: 201108

REACTIONS (11)
  - Pollakiuria [Recovered/Resolved]
  - Nasal congestion [Recovered/Resolved]
  - Back pain [Not Recovered/Not Resolved]
  - Influenza like illness [Recovered/Resolved]
  - Pain [Recovered/Resolved]
  - Injection site pain [Recovered/Resolved]
  - Insomnia [Recovered/Resolved]
  - Pain in extremity [Recovered/Resolved]
  - Arthralgia [Recovered/Resolved]
  - Muscle tightness [Not Recovered/Not Resolved]
  - Depressed mood [Not Recovered/Not Resolved]
